FAERS Safety Report 18228664 (Version 1)
Quarter: 2020Q3

REPORT INFORMATION
  Report Type: Spontaneous
  Country: US (occurrence: US)
  Receive Date: 20200903
  Receipt Date: 20200903
  Transmission Date: 20201103
  Serious: No
  Sender: FDA-Public Use
  Company Number: US-BECTON DICKINSON-2019BDN00444

PATIENT
  Age: 61 Year
  Sex: Male
  Weight: 84.35 kg

DRUGS (6)
  1. CHLORAPREP WITH TINT [Suspect]
     Active Substance: CHLORHEXIDINE GLUCONATE\ISOPROPYL ALCOHOL
     Indication: INFECTION PROPHYLAXIS
     Dosage: UNK UNK, ONCE
     Route: 061
     Dates: start: 20191213, end: 20191213
  2. CHLORAPREP WITH TINT [Suspect]
     Active Substance: CHLORHEXIDINE GLUCONATE\ISOPROPYL ALCOHOL
     Dosage: UNK UNK, ONCE
     Route: 061
     Dates: start: 20191216, end: 20191216
  3. VALIUM [Concomitant]
     Active Substance: DIAZEPAM
     Dosage: UNK
     Dates: start: 20191213, end: 20191213
  4. OMEPRAZOLE. [Concomitant]
     Active Substance: OMEPRAZOLE
  5. ANDROGEL [Concomitant]
     Active Substance: TESTOSTERONE
     Dosage: UNK, 1X/DAY
     Route: 061
  6. CLOBETASOL [Concomitant]
     Active Substance: CLOBETASOL

REACTIONS (4)
  - Application site rash [Recovering/Resolving]
  - Application site hypersensitivity [Recovering/Resolving]
  - Application site pruritus [Recovering/Resolving]
  - Application site urticaria [Recovering/Resolving]

NARRATIVE: CASE EVENT DATE: 20191213
